FAERS Safety Report 13918976 (Version 2)
Quarter: 2017Q3

REPORT INFORMATION
  Report Type: Report from Study
  Country: None (occurrence: CA)
  Receive Date: 20170830
  Receipt Date: 20170901
  Transmission Date: 20171127
  Serious: Yes (Other)
  Sender: FDA-Public Use
  Company Number: CA-ABBVIE-17K-028-2059153-00

PATIENT
  Sex: Female

DRUGS (2)
  1. HUMIRA [Suspect]
     Active Substance: ADALIMUMAB
     Indication: CROHN^S DISEASE
     Route: 058
     Dates: start: 20170420, end: 20170727
  2. HUMIRA [Suspect]
     Active Substance: ADALIMUMAB
     Route: 058
     Dates: start: 201708

REACTIONS (6)
  - Swelling [Not Recovered/Not Resolved]
  - Haemoglobin decreased [Not Recovered/Not Resolved]
  - Weight increased [Not Recovered/Not Resolved]
  - Rash macular [Not Recovered/Not Resolved]
  - Haemorrhage [Not Recovered/Not Resolved]
  - Blood iron decreased [Not Recovered/Not Resolved]

NARRATIVE: CASE EVENT DATE: 2017
